FAERS Safety Report 14125028 (Version 4)
Quarter: 2018Q3

REPORT INFORMATION
  Report Type: Report from Study
  Country: None (occurrence: US)
  Receive Date: 20171025
  Receipt Date: 20180816
  Transmission Date: 20181010
  Serious: Yes (Hospitalization)
  Sender: FDA-Public Use
  Company Number: US-ABBVIE-17K-163-2137771-00

PATIENT
  Age: 56 Year
  Sex: Female

DRUGS (1)
  1. HUMIRA [Suspect]
     Active Substance: ADALIMUMAB
     Indication: CROHN^S DISEASE
     Route: 058

REACTIONS (13)
  - Vomiting [Unknown]
  - Fungal infection [Unknown]
  - Intervertebral disc disorder [Recovered/Resolved]
  - Clostridium difficile infection [Not Recovered/Not Resolved]
  - Fall [Unknown]
  - Urinary tract infection [Unknown]
  - Stress [Not Recovered/Not Resolved]
  - Osteoporosis [Unknown]
  - Crohn^s disease [Unknown]
  - Dehydration [Unknown]
  - Condition aggravated [Unknown]
  - Intervertebral disc disorder [Recovered/Resolved]
  - Kidney infection [Unknown]

NARRATIVE: CASE EVENT DATE: 201606
